FAERS Safety Report 7451091-5 (Version None)
Quarter: 2011Q2

REPORT INFORMATION
  Report Type: 
  Country: None (occurrence: None)
  Receive Date: 20110422
  Receipt Date: 20110407
  Transmission Date: 20111010
  Serious: No
  Sender: FDA-Public Use
  Company Number: SPI201100090

PATIENT
  Sex: Female

DRUGS (2)
  1. AMITIZA [Suspect]
     Indication: CONSTIPATION
     Dosage: 24 MCG, BID, ORAL 24 MCG QD, ORAL
     Route: 048
  2. AMITIZA [Suspect]
     Dosage: 24 MCG, BID, ORAL
     Route: 048

REACTIONS (2)
  - CHEST PAIN [None]
  - CHEST DISCOMFORT [None]
